FAERS Safety Report 19886977 (Version 1)
Quarter: 2021Q3

REPORT INFORMATION
  Report Type: Spontaneous
  Country: DE (occurrence: DE)
  Receive Date: 20210927
  Receipt Date: 20210927
  Transmission Date: 20211014
  Serious: Yes (Other)
  Sender: FDA-Public Use
  Company Number: DE-MYLANLABS-2021M1064652

PATIENT
  Age: 79 Year
  Sex: Female

DRUGS (1)
  1. LEVODOPA+CARBIDOPA+ENTACAPONE/MYLAN F.C.TAB(75+18,75+200)MG/TAB [Suspect]
     Active Substance: CARBIDOPA\ENTACAPONE\LEVODOPA
     Indication: PARKINSON^S DISEASE
     Dosage: UNK
     Route: 048
     Dates: start: 202103

REACTIONS (2)
  - Dysbiosis [Not Recovered/Not Resolved]
  - Diarrhoea [Not Recovered/Not Resolved]

NARRATIVE: CASE EVENT DATE: 202103
